FAERS Safety Report 5700371-X (Version None)
Quarter: 2008Q2

REPORT INFORMATION
  Report Type: 
  Country: None (occurrence: None)
  Receive Date: 20080410
  Receipt Date: 20080401
  Transmission Date: 20081010
  Serious: Yes (Disabling, Other)
  Sender: FDA-Public Use
  Company Number: CA-ELI_LILLY_AND_COMPANY-CA200803003293

PATIENT
  Sex: Male

DRUGS (4)
  1. CIALIS [Suspect]
     Indication: ERECTILE DYSFUNCTION
     Dosage: UNK, UNK
     Route: 048
     Dates: start: 20080222, end: 20080101
  2. ASPIRIN [Concomitant]
     Dosage: 81 MG, UNK
     Route: 048
  3. ZOCOR [Concomitant]
  4. PRINIVIL [Concomitant]

REACTIONS (1)
  - OPTIC ISCHAEMIC NEUROPATHY [None]
